FAERS Safety Report 5364422-7 (Version None)
Quarter: 2007Q2

REPORT INFORMATION
  Report Type: 
  Country: None (occurrence: None)
  Receive Date: 20070530
  Receipt Date: 20070107
  Transmission Date: 20071010
  Serious: No
  Sender: FDA-Public Use
  Company Number: 2007PV027946

PATIENT
  Age: 44 Year
  Sex: Female
  Weight: 62.5964 kg

DRUGS (5)
  1. BYETTA [Suspect]
     Indication: DIABETES MELLITUS NON-INSULIN-DEPENDENT
     Dosage: 5 MCG;SC
     Route: 058
     Dates: start: 20070105, end: 20070107
  2. METFORMIN HCL [Concomitant]
  3. ACTOS [Concomitant]
  4. GLYBURIDE [Concomitant]
  5. SIMVASTATIN [Concomitant]

REACTIONS (4)
  - FEELING ABNORMAL [None]
  - FEELING HOT [None]
  - INSOMNIA [None]
  - VOMITING [None]
